FAERS Safety Report 8461952-6 (Version None)
Quarter: 2012Q2

REPORT INFORMATION
  Report Type: 
  Country: None (occurrence: None)
  Receive Date: 20120625
  Receipt Date: 20120614
  Transmission Date: 20120825
  Serious: Yes (Death, Other)
  Sender: FDA-Public Use
  Company Number: JP-CELGENEUS-087-50794-12062993

PATIENT
  Sex: Female
  Weight: 74 kg

DRUGS (54)
  1. VIDAZA [Suspect]
     Dosage: 37.5 MILLIGRAM/SQ. METER
     Route: 041
     Dates: start: 20120302, end: 20120308
  2. NEUTROGIN [Concomitant]
     Route: 065
     Dates: start: 20111101, end: 20111108
  3. GARENOXACIN MESYLATE [Concomitant]
     Route: 065
     Dates: start: 20111123, end: 20111129
  4. LEVOFLOXACIN [Concomitant]
     Route: 065
     Dates: start: 20120109, end: 20120127
  5. RAMELTEON [Concomitant]
     Route: 065
     Dates: start: 20120112, end: 20120118
  6. TEICOPLANIN [Concomitant]
     Route: 065
     Dates: start: 20120428, end: 20120506
  7. PLATELETS [Concomitant]
     Route: 041
  8. VIDAZA [Suspect]
     Indication: MYELODYSPLASTIC SYNDROME
     Dosage: 75 MILLIGRAM/SQ. METER
     Route: 041
     Dates: start: 20111008, end: 20111014
  9. ALLEGRA [Concomitant]
     Route: 065
     Dates: start: 20111008
  10. LEVOFLOXACIN [Concomitant]
     Route: 065
     Dates: start: 20111222, end: 20111228
  11. RAMELTEON [Concomitant]
     Route: 065
     Dates: start: 20120302, end: 20120308
  12. KETEK [Concomitant]
     Route: 065
     Dates: start: 20120124, end: 20120128
  13. DIFLUCAN [Concomitant]
     Route: 065
     Dates: start: 20120322, end: 20120405
  14. ADONA [Concomitant]
     Route: 065
     Dates: start: 20120421
  15. KYTRIL [Concomitant]
     Route: 065
     Dates: start: 20120316, end: 20120403
  16. RBC TRANSFUSION [Concomitant]
     Route: 041
  17. MAGMITT [Concomitant]
     Route: 065
     Dates: start: 20120406
  18. MICAMLO [Concomitant]
     Route: 065
     Dates: start: 20111008
  19. RAMELTEON [Concomitant]
     Route: 065
     Dates: start: 20111008, end: 20111014
  20. RAMELTEON [Concomitant]
     Route: 065
     Dates: start: 20111119, end: 20111125
  21. SLOW-K [Concomitant]
     Route: 065
     Dates: start: 20120330
  22. MEROPENEM [Concomitant]
     Route: 065
     Dates: start: 20120428, end: 20120506
  23. VANCOMYCIN [Concomitant]
     Route: 065
     Dates: start: 20120318, end: 20120411
  24. MAXIPIME [Concomitant]
     Route: 065
     Dates: start: 20111030, end: 20111107
  25. VFEND [Concomitant]
     Route: 065
     Dates: start: 20120429
  26. MEROPENEM [Concomitant]
     Route: 065
     Dates: start: 20120219, end: 20120303
  27. VANCOMYCIN [Concomitant]
     Route: 065
     Dates: start: 20120225, end: 20120302
  28. ZOSYN [Concomitant]
     Route: 065
     Dates: start: 20120411, end: 20120423
  29. VIDAZA [Suspect]
     Dosage: 37.5 MILLIGRAM/SQ. METER
     Route: 041
     Dates: start: 20111119, end: 20111125
  30. MAXIPIME [Concomitant]
     Route: 065
     Dates: start: 20120210, end: 20120217
  31. ITRACONAZOLE [Concomitant]
     Route: 065
     Dates: start: 20111031, end: 20111129
  32. LEVOFLOXACIN [Concomitant]
     Route: 065
     Dates: start: 20120411, end: 20120416
  33. RABEPRAZOLE SODIUM [Concomitant]
     Route: 065
     Dates: start: 20120319
  34. MUCOSOLVAN [Concomitant]
     Route: 065
     Dates: start: 20120405
  35. HABEKACIN [Concomitant]
     Route: 065
     Dates: start: 20120424, end: 20120428
  36. SIGMART [Concomitant]
     Route: 065
     Dates: start: 20111008
  37. CODEINE PHOSPHATE HYDRATE [Concomitant]
     Route: 065
     Dates: start: 20120403
  38. FUNGARD [Concomitant]
     Route: 065
     Dates: start: 20120213, end: 20120307
  39. FUNGARD [Concomitant]
     Route: 065
     Dates: start: 20120404, end: 20120428
  40. WYSTAL [Concomitant]
     Route: 065
     Dates: start: 20120423, end: 20120428
  41. VIDAZA [Suspect]
     Dosage: 37.5 MILLIGRAM/SQ. METER
     Route: 041
     Dates: start: 20120112, end: 20120118
  42. VIDAZA [Suspect]
     Dosage: 75 MILLIGRAM/SQ. METER
     Route: 041
     Dates: start: 20120330, end: 20120404
  43. TRAMADOL HYDROCHLORIDE [Concomitant]
     Dosage: 25 MILLIGRAM
     Route: 065
     Dates: start: 20120429
  44. EQUA [Concomitant]
     Route: 065
     Dates: start: 20111008
  45. ZOLPIDEM [Concomitant]
     Route: 065
     Dates: start: 20111108
  46. RAMELTEON [Concomitant]
     Route: 065
     Dates: start: 20120330, end: 20120404
  47. MEROPENEM [Concomitant]
     Route: 065
     Dates: start: 20120403, end: 20120411
  48. KYTRIL [Concomitant]
     Route: 065
     Dates: start: 20120304, end: 20120311
  49. ITRACONAZOLE [Concomitant]
     Indication: PHARYNGITIS
     Route: 065
  50. GARENOXACIN MESILATE HYDRATE [Concomitant]
     Indication: PYREXIA
     Route: 065
  51. ASTOMIN [Concomitant]
     Route: 065
     Dates: start: 20111008
  52. ACETAMINOPHEN [Concomitant]
     Route: 065
     Dates: start: 20120224
  53. VENOGLOBULIN [Concomitant]
     Route: 065
     Dates: start: 20120407, end: 20120409
  54. CEFEPIME DIHYDROCHLORIDE HYDRATE [Concomitant]
     Indication: PHARYNGITIS
     Route: 065

REACTIONS (1)
  - PNEUMONIA [None]
